FAERS Safety Report 5040751-1 (Version None)
Quarter: 2006Q3

REPORT INFORMATION
  Report Type: 
  Country: None (occurrence: None)
  Receive Date: 20060703
  Receipt Date: 20060213
  Transmission Date: 20061208
  Serious: Yes (Death, Hospitalization)
  Sender: FDA-Public Use
  Company Number: PHHO2006DE02573

PATIENT
  Age: 9 Year
  Sex: Male

DRUGS (5)
  1. SIMULECT [Suspect]
     Indication: RENAL TRANSPLANT
     Dosage: 10 MG, DAY 0
     Route: 042
     Dates: start: 20050104, end: 20050104
  2. SIMULECT [Suspect]
     Dosage: 10 MG, DAY 4
     Route: 042
     Dates: start: 20050108, end: 20050108
  3. NEORAL [Suspect]
     Indication: RENAL TRANSPLANT
     Dosage: 100 MG, BID
     Route: 048
     Dates: start: 20050721
  4. CELLCEPT [Suspect]
     Indication: RENAL TRANSPLANT
     Dosage: 250 MG, BID
     Route: 048
     Dates: start: 20050926
  5. DECORTIN-H [Suspect]
     Indication: RENAL TRANSPLANT
     Dosage: 5 MG, QD
     Route: 048
     Dates: start: 20050604

REACTIONS (10)
  - ADENOVIRUS INFECTION [None]
  - BRAIN OEDEMA [None]
  - CARDIAC ARREST [None]
  - DIARRHOEA [None]
  - GASTROINTESTINAL HAEMORRHAGE [None]
  - INTRACRANIAL PRESSURE INCREASED [None]
  - MENINGOENCEPHALITIS ADENOVIRAL [None]
  - MUSCULOSKELETAL STIFFNESS [None]
  - PYREXIA [None]
  - SOMNOLENCE [None]
